FAERS Safety Report 5638598-8 (Version None)
Quarter: 2008Q1

REPORT INFORMATION
  Report Type: 
  Country: None (occurrence: None)
  Receive Date: 20080226
  Receipt Date: 20070906
  Transmission Date: 20080703
  Serious: No
  Sender: FDA-Public Use
  Company Number: A0659672A

PATIENT
  Age: 41 Year
  Sex: Female

DRUGS (7)
  1. IMITREX [Suspect]
     Indication: MIGRAINE
     Dosage: 4MG PER DAY
     Route: 058
  2. TOPAMAX [Concomitant]
  3. IMITREX [Concomitant]
  4. BENZACLIN [Concomitant]
  5. IMITREX [Concomitant]
     Route: 045
  6. FLUOXETINE [Concomitant]
  7. MINOCYCLINE HCL [Concomitant]

REACTIONS (2)
  - DRUG INEFFECTIVE [None]
  - PHARMACEUTICAL PRODUCT COMPLAINT [None]
